FAERS Safety Report 15793362 (Version 2)
Quarter: 2019Q2

REPORT INFORMATION
  Report Type: Spontaneous
  Country: US (occurrence: US)
  Receive Date: 20190107
  Receipt Date: 20190408
  Transmission Date: 20190711
  Serious: No
  Sender: FDA-Public Use
  Company Number: US-ACLARIS THERAPEUTICS-2018US011685

PATIENT
  Age: 59 Year
  Sex: Female
  Weight: 54.42 kg

DRUGS (5)
  1. ESKATA [Suspect]
     Active Substance: HYDROGEN PEROXIDE
     Indication: SEBORRHOEIC KERATOSIS
     Dosage: 1 DF, SINGLE
     Route: 061
     Dates: start: 201810
  2. ARMOUR THYROID [Concomitant]
     Active Substance: THYROID, PORCINE
     Indication: HYPOTHYROIDISM
     Dosage: UNK
  3. ESTRADIOL. [Concomitant]
     Active Substance: ESTRADIOL
     Indication: BONE LOSS
     Dosage: UNK
  4. ESKATA [Suspect]
     Active Substance: HYDROGEN PEROXIDE
     Dosage: 1 DF, SINGLE
     Route: 061
     Dates: start: 201811
  5. PROGESTERONE. [Concomitant]
     Active Substance: PROGESTERONE
     Indication: BONE LOSS
     Dosage: UNK

REACTIONS (5)
  - Application site pain [Recovered/Resolved]
  - Lacrimation increased [Recovered/Resolved]
  - Application site reaction [None]
  - Product complaint [Unknown]
  - Drug ineffective [Unknown]

NARRATIVE: CASE EVENT DATE: 201811
